FAERS Safety Report 20080431 (Version 1)
Quarter: 2021Q4

REPORT INFORMATION
  Report Type: Spontaneous
  Country: US (occurrence: None)
  Receive Date: 20211116
  Receipt Date: 20211116
  Transmission Date: 20220303
  Serious: Yes (Other)
  Sender: FDA-Public Use
  Company Number: None

PATIENT
  Age: 62 Year
  Sex: Female

DRUGS (4)
  1. INGREZZA [Suspect]
     Active Substance: VALBENAZINE
     Indication: Tardive dyskinesia
     Dosage: FREQUENCY : AT BEDTIME;?
     Route: 048
     Dates: start: 20211103, end: 20211107
  2. HALOPERIDOL [Concomitant]
     Active Substance: HALOPERIDOL
     Dates: start: 20200715
  3. VISTARIL [Concomitant]
     Active Substance: HYDROXYZINE PAMOATE
     Dates: start: 20200303
  4. ARTANE [Concomitant]
     Active Substance: TRIHEXYPHENIDYL HYDROCHLORIDE
     Dates: start: 20200210, end: 20211103

REACTIONS (5)
  - Delirium [None]
  - Tachyphrenia [None]
  - Psychomotor hyperactivity [None]
  - Insomnia [None]
  - Disorientation [None]

NARRATIVE: CASE EVENT DATE: 20211104
